FAERS Safety Report 20533820 (Version 3)
Quarter: 2022Q1

REPORT INFORMATION
  Report Type: Report from Study
  Country: FR (occurrence: FR)
  Receive Date: 20220301
  Receipt Date: 20220310
  Transmission Date: 20220423
  Serious: Yes (Hospitalization, Other)
  Sender: FDA-Public Use
  Company Number: FR-GILEAD-2022-0564530

PATIENT
  Sex: Female
  Weight: 95 kg

DRUGS (3)
  1. SACITUZUMAB GOVITECAN [Suspect]
     Active Substance: SACITUZUMAB GOVITECAN
     Indication: Breast cancer metastatic
     Dosage: 10 MG/KG (930 MG), C1 D8
     Route: 042
     Dates: start: 20211216, end: 20211216
  2. SACITUZUMAB GOVITECAN [Suspect]
     Active Substance: SACITUZUMAB GOVITECAN
     Dosage: 10 MG/KG (930 MG), C1 D1
     Route: 042
     Dates: start: 20211209, end: 20211209
  3. SACITUZUMAB GOVITECAN [Suspect]
     Active Substance: SACITUZUMAB GOVITECAN
     Dosage: 7.5 MG/KG AT DISCONTINUATION
     Route: 042
     Dates: end: 20220223

REACTIONS (2)
  - Disease progression [Unknown]
  - Febrile neutropenia [Recovered/Resolved]

NARRATIVE: CASE EVENT DATE: 20211220
